FAERS Safety Report 16086086 (Version 2)
Quarter: 2019Q2

REPORT INFORMATION
  Report Type: Spontaneous
  Country: JP (occurrence: JP)
  Receive Date: 20190318
  Receipt Date: 20190401
  Transmission Date: 20190711
  Serious: No
  Sender: FDA-Public Use
  Company Number: JP-ALLERGAN-1911364US

PATIENT
  Sex: Male

DRUGS (1)
  1. BOTOX [Suspect]
     Active Substance: ONABOTULINUMTOXINA
     Indication: MUSCLE SPASTICITY
     Dosage: UNK, SINGLE
     Route: 030
     Dates: start: 20181111, end: 20181111

REACTIONS (3)
  - Gait disturbance [Unknown]
  - Muscular weakness [Unknown]
  - Hypokinesia [Unknown]

NARRATIVE: CASE EVENT DATE: 2019
